FAERS Safety Report 13196964 (Version 1)
Quarter: 2017Q1

REPORT INFORMATION
  Report Type: Spontaneous
  Country: US (occurrence: US)
  Receive Date: 20170208
  Receipt Date: 20170208
  Transmission Date: 20170428
  Serious: No
  Sender: FDA-Public Use
  Company Number: US-AMGEN-USASP2016117711

PATIENT

DRUGS (22)
  1. CYCLOPHOSPHAMIDE. [Concomitant]
     Active Substance: CYCLOPHOSPHAMIDE
     Indication: PROGESTERONE RECEPTOR ASSAY POSITIVE
  2. PERJETA [Concomitant]
     Active Substance: PERTUZUMAB
     Indication: OESTROGEN RECEPTOR ASSAY POSITIVE
  3. CYCLOPHOSPHAMIDE. [Concomitant]
     Active Substance: CYCLOPHOSPHAMIDE
     Indication: INVASIVE DUCTAL BREAST CARCINOMA
     Dosage: UNK
     Dates: start: 20140723
  4. ZOLADEX [Concomitant]
     Active Substance: GOSERELIN ACETATE
     Indication: INVASIVE DUCTAL BREAST CARCINOMA
     Dosage: UNK
     Dates: start: 20150224
  5. ADRIAMYCIN [Concomitant]
     Active Substance: DOXORUBICIN HYDROCHLORIDE
     Indication: PROGESTERONE RECEPTOR ASSAY POSITIVE
  6. ZOLADEX [Concomitant]
     Active Substance: GOSERELIN ACETATE
     Indication: OESTROGEN RECEPTOR ASSAY POSITIVE
  7. ZOLADEX [Concomitant]
     Active Substance: GOSERELIN ACETATE
     Indication: PROGESTERONE RECEPTOR ASSAY POSITIVE
  8. ADRIAMYCIN [Concomitant]
     Active Substance: DOXORUBICIN HYDROCHLORIDE
     Indication: OESTROGEN RECEPTOR ASSAY POSITIVE
  9. CYCLOPHOSPHAMIDE. [Concomitant]
     Active Substance: CYCLOPHOSPHAMIDE
     Indication: OESTROGEN RECEPTOR ASSAY POSITIVE
  10. PERJETA [Concomitant]
     Active Substance: PERTUZUMAB
     Indication: PROGESTERONE RECEPTOR ASSAY POSITIVE
  11. AROMASIN [Concomitant]
     Active Substance: EXEMESTANE
     Indication: OESTROGEN RECEPTOR ASSAY POSITIVE
  12. TAXOL [Concomitant]
     Active Substance: PACLITAXEL
     Indication: INVASIVE DUCTAL BREAST CARCINOMA
     Dosage: UNK
     Dates: start: 20140916
  13. HERCEPTIN [Concomitant]
     Active Substance: TRASTUZUMAB
     Indication: OESTROGEN RECEPTOR ASSAY POSITIVE
  14. ADRIAMYCIN [Concomitant]
     Active Substance: DOXORUBICIN HYDROCHLORIDE
     Indication: INVASIVE DUCTAL BREAST CARCINOMA
     Dosage: UNK
     Dates: start: 20140723
  15. TAXOL [Concomitant]
     Active Substance: PACLITAXEL
     Indication: OESTROGEN RECEPTOR ASSAY POSITIVE
  16. PERJETA [Concomitant]
     Active Substance: PERTUZUMAB
     Indication: INVASIVE DUCTAL BREAST CARCINOMA
     Dosage: UNK
     Dates: start: 20140916
  17. HERCEPTIN [Concomitant]
     Active Substance: TRASTUZUMAB
     Indication: INVASIVE DUCTAL BREAST CARCINOMA
     Dosage: UNK
     Dates: start: 20140916
  18. TAXOL [Concomitant]
     Active Substance: PACLITAXEL
     Indication: PROGESTERONE RECEPTOR ASSAY POSITIVE
  19. AROMASIN [Concomitant]
     Active Substance: EXEMESTANE
     Indication: INVASIVE DUCTAL BREAST CARCINOMA
     Dosage: UNK
     Dates: start: 20150224
  20. NEULASTA [Suspect]
     Active Substance: PEGFILGRASTIM
     Indication: PRODUCT USED FOR UNKNOWN INDICATION
     Dosage: UNK
     Route: 065
  21. HERCEPTIN [Concomitant]
     Active Substance: TRASTUZUMAB
     Indication: PROGESTERONE RECEPTOR ASSAY POSITIVE
  22. AROMASIN [Concomitant]
     Active Substance: EXEMESTANE
     Indication: PROGESTERONE RECEPTOR ASSAY POSITIVE

REACTIONS (5)
  - Pyrexia [Unknown]
  - Feeling abnormal [Unknown]
  - Insomnia [Unknown]
  - Activities of daily living impaired [Unknown]
  - Asthenia [Unknown]
